FAERS Safety Report 9999939 (Version 1)
Quarter: 2014Q1

REPORT INFORMATION
  Report Type: Spontaneous
  Country: US (occurrence: None)
  Receive Date: 20140227
  Receipt Date: 20140227
  Transmission Date: 20141002
  Serious: Yes (Hospitalization)
  Sender: FDA-Public Use
  Company Number: DEP_01847_2014

PATIENT
  Age: 64 Year
  Sex: Male

DRUGS (3)
  1. GRALISE [Suspect]
     Indication: PRODUCT USED FOR UNKNOWN INDICATION
     Dosage: (TITRATED UP TO 1800 MG DAILY ORAL)
     Route: 048
     Dates: start: 20130822, end: 20130925
  2. NORCO [Concomitant]
  3. WELLBUTRIN [Concomitant]

REACTIONS (4)
  - Muscle spasms [None]
  - Chest pain [None]
  - Myalgia [None]
  - Muscle tightness [None]
